FAERS Safety Report 16846524 (Version 1)
Quarter: 2019Q3

REPORT INFORMATION
  Report Type: Spontaneous
  Country: FR (occurrence: FR)
  Receive Date: 20190924
  Receipt Date: 20190924
  Transmission Date: 20191005
  Serious: Yes (Hospitalization)
  Sender: FDA-Public Use
  Company Number: FR-MYLANLABS-2019M1088749

PATIENT
  Age: 15 Year
  Sex: Male

DRUGS (2)
  1. METHOTREXATE MYLAN 100 MG/ML, SOLUTION FOR INJECTION [Suspect]
     Active Substance: METHOTREXATE
     Indication: DESMOID TUMOUR
     Dosage: 30 MILLIGRAM/SQ. METER
     Route: 042
     Dates: start: 20181026, end: 20190402
  2. VELBE [Suspect]
     Active Substance: VINBLASTINE SULFATE
     Indication: DESMOID TUMOUR
     Dosage: 6 MILLIGRAM/SQ. METER
     Route: 042
     Dates: start: 20181026, end: 20190402

REACTIONS (1)
  - Ventricular tachycardia [Not Recovered/Not Resolved]

NARRATIVE: CASE EVENT DATE: 201902
